FAERS Safety Report 7746208-9 (Version None)
Quarter: 2011Q3

REPORT INFORMATION
  Report Type: 
  Country: None (occurrence: None)
  Receive Date: 20110913
  Receipt Date: 20110907
  Transmission Date: 20111222
  Serious: Yes (Death, Life-Threatening, Hospitalization)
  Sender: FDA-Public Use
  Company Number: KR-BAYER-2011-014615

PATIENT
  Age: 53 Year
  Sex: Male
  Weight: 59 kg

DRUGS (84)
  1. CARVEDILOL [Concomitant]
     Dosage: 25 MG, QD
     Route: 048
     Dates: start: 20110415, end: 20110428
  2. NEURONTIN [Concomitant]
     Dosage: 300 MG, TID
     Dates: start: 20110502, end: 20110823
  3. LASIX [Concomitant]
     Indication: PREMEDICATION
     Dosage: 20 MG, QD
     Route: 042
     Dates: start: 20110215, end: 20110215
  4. CLINIMIX N9G15E [Concomitant]
     Indication: MEDICAL DIET
     Dosage: 1500 ML, QD
     Route: 042
     Dates: start: 20110214, end: 20110216
  5. ULTRAVIST 150 [Concomitant]
     Dosage: 100 ML, QD
     Route: 042
     Dates: start: 20110518, end: 20110518
  6. URSA [Concomitant]
     Dosage: 100 MG, TID
     Route: 048
     Dates: start: 20110502, end: 20110823
  7. MEK INHIBITOR (DIHYDROXYPROP-DIFLU-METHOXYPHEN-CYCLOPROPA-SULFAMI) [Suspect]
     Dosage: 30 MG, QD
     Route: 048
     Dates: start: 20110221, end: 20110227
  8. MEK INHIBITOR (DIHYDROXYPROP-DIFLU-METHOXYPHEN-CYCLOPROPA-SULFAMI) [Suspect]
     Dosage: 30 MG, BID
     Route: 048
     Dates: start: 20110321, end: 20110414
  9. MEK INHIBITOR (DIHYDROXYPROP-DIFLU-METHOXYPHEN-CYCLOPROPA-SULFAMI) [Suspect]
     Dosage: 30 MG, BID
     Route: 048
     Dates: start: 20110525, end: 20110614
  10. SORAFENIB (RAF KINASE INHIBITOR) [Suspect]
     Dosage: 400 MG, QD
     Route: 048
     Dates: start: 20110228, end: 20110306
  11. SORAFENIB (RAF KINASE INHIBITOR) [Suspect]
     Dosage: 400 MG, QD
     Route: 048
     Dates: start: 20110415, end: 20110427
  12. LANSOPRAZOLE [Concomitant]
     Dosage: 15 ML, QD
     Route: 048
     Dates: start: 20110217, end: 20110428
  13. PHENIRAMINE [Concomitant]
     Dosage: 150000 U, UNK
     Dates: start: 20110215, end: 20110220
  14. L-CARNITINE [Concomitant]
     Dosage: 1 C TID
     Route: 048
     Dates: start: 20110502, end: 20110823
  15. COMBIFLEX [Concomitant]
     Dosage: 1440 ML, QD
     Route: 042
     Dates: start: 20110430, end: 20110502
  16. MAGNESIUM OXIDE [Concomitant]
     Dosage: 500 MG, TID
     Route: 048
     Dates: start: 20110706, end: 20110823
  17. MEK INHIBITOR (DIHYDROXYPROP-DIFLU-METHOXYPHEN-CYCLOPROPA-SULFAMI) [Suspect]
     Dosage: 50 MG, BID
     Route: 048
     Dates: start: 20110208, end: 20110211
  18. MEK INHIBITOR (DIHYDROXYPROP-DIFLU-METHOXYPHEN-CYCLOPROPA-SULFAMI) [Suspect]
     Dosage: 30 MG, BID
     Dates: start: 20110228, end: 20110306
  19. MEK INHIBITOR (DIHYDROXYPROP-DIFLU-METHOXYPHEN-CYCLOPROPA-SULFAMI) [Suspect]
     Dosage: 30 MG, QD
     Route: 048
     Dates: start: 20110725, end: 20110725
  20. NEURONTIN [Concomitant]
     Indication: PERIPHERAL SENSORY NEUROPATHY
     Dosage: 300 MG, TID
     Route: 048
     Dates: start: 20101115, end: 20110213
  21. PHENIRAMINE [Concomitant]
     Indication: PROPHYLAXIS
     Dosage: 4 MG, QD
     Route: 042
     Dates: start: 20110215, end: 20110215
  22. PHENIRAMINE [Concomitant]
     Dosage: 1000 MG, UNK
     Route: 042
     Dates: start: 20110216, end: 20110216
  23. PHENIRAMINE [Concomitant]
  24. CLINIMIX N9G15E [Concomitant]
     Dosage: 1.5 L QD
     Route: 042
     Dates: start: 20110502, end: 20110503
  25. ULTRAVIST 150 [Concomitant]
     Dosage: 100 ML, QD
     Route: 042
     Dates: start: 20110719, end: 20110719
  26. MUCOSTIN [Concomitant]
     Dosage: 600 MG, BID
     Route: 042
     Dates: start: 20110214, end: 20110216
  27. TC-99M-RBC [Concomitant]
     Dosage: 1 BOTTLE QD
     Route: 042
     Dates: start: 20110201, end: 20110201
  28. URSA [Concomitant]
     Dosage: 100 MG, TID
     Route: 048
     Dates: start: 20110217, end: 20110228
  29. MEK INHIBITOR (DIHYDROXYPROP-DIFLU-METHOXYPHEN-CYCLOPROPA-SULFAMI) [Suspect]
     Dosage: 30 MG, BID
     Route: 048
     Dates: start: 20110415, end: 20110427
  30. MEK INHIBITOR (DIHYDROXYPROP-DIFLU-METHOXYPHEN-CYCLOPROPA-SULFAMI) [Suspect]
     Dosage: 30 MG, BID
     Route: 048
     Dates: start: 20110615, end: 20110705
  31. SORAFENIB (RAF KINASE INHIBITOR) [Suspect]
     Dosage: 400 MG, QD
     Dates: start: 20110314, end: 20110320
  32. SORAFENIB (RAF KINASE INHIBITOR) [Suspect]
     Dosage: 400 MG, QOD
     Route: 048
     Dates: start: 20110526, end: 20110613
  33. SORAFENIB (RAF KINASE INHIBITOR) [Suspect]
     Dosage: 400 MG, QOD
     Route: 048
     Dates: start: 20110706, end: 20110724
  34. CARVEDILOL [Concomitant]
     Indication: HYPERTENSION
     Dosage: 25 MG, QD
     Route: 048
     Dates: start: 20100616, end: 20110213
  35. LASIX [Concomitant]
     Dosage: 20 MG, QD
     Route: 042
     Dates: start: 20110216, end: 20110216
  36. KABIVEN [Concomitant]
     Indication: MEDICAL DIET
     Dosage: 1440 ML, QD
     Route: 042
     Dates: start: 20110216, end: 20110217
  37. ULTRAVIST 150 [Concomitant]
     Indication: COMPUTERISED TOMOGRAM
     Dosage: 100 ML, QD
     Route: 042
     Dates: start: 20110201, end: 20110201
  38. SIMETHICONE [Concomitant]
     Dosage: 20 ML, QD
     Route: 048
     Dates: start: 20110725, end: 20110725
  39. MEK INHIBITOR (DIHYDROXYPROP-DIFLU-METHOXYPHEN-CYCLOPROPA-SULFAMI) [Suspect]
     Dosage: 30 MG, BID
     Route: 048
     Dates: start: 20110706, end: 20110724
  40. SORAFENIB (RAF KINASE INHIBITOR) [Suspect]
     Indication: HEPATIC NEOPLASM MALIGNANT
     Dosage: 400 MG, QD
     Route: 048
     Dates: start: 20110207, end: 20110207
  41. CARVEDILOL [Concomitant]
     Dosage: 25 MG, QD
     Route: 048
     Dates: start: 20110502, end: 20110823
  42. LANSOPRAZOLE [Concomitant]
     Indication: GASTROOESOPHAGEAL REFLUX DISEASE
     Dosage: 30 MG, QD
     Route: 048
     Dates: start: 20100714, end: 20110213
  43. LOPERAMIDE [Concomitant]
     Indication: DIARRHOEA
     Dosage: 2 MG, PRN
     Route: 048
     Dates: start: 20110207, end: 20110210
  44. ADELAVIN [Concomitant]
     Dosage: 20 ML, QD
     Route: 042
     Dates: start: 20110725, end: 20110801
  45. ACETYLCYSTEINE [Concomitant]
     Dosage: 600 MG, BID
     Route: 042
     Dates: start: 20110214, end: 20110216
  46. PHENIRAMINE [Concomitant]
     Dosage: UNK
     Route: 048
     Dates: start: 20110217
  47. ULTRAVIST 150 [Concomitant]
     Dosage: 100 ML, QD
     Route: 042
     Dates: start: 20110314, end: 20110314
  48. SIMETHICONE [Concomitant]
     Dosage: 20 ML, QD
     Route: 048
     Dates: start: 20110214, end: 20110214
  49. MEK INHIBITOR (DIHYDROXYPROP-DIFLU-METHOXYPHEN-CYCLOPROPA-SULFAMI) [Suspect]
     Indication: HEPATIC NEOPLASM MALIGNANT
     Dosage: 50 MG, QD
     Route: 048
     Dates: start: 20110207, end: 20110207
  50. MEK INHIBITOR (DIHYDROXYPROP-DIFLU-METHOXYPHEN-CYCLOPROPA-SULFAMI) [Suspect]
     Dosage: 50 MG, QD
     Route: 048
     Dates: start: 20110212, end: 20110212
  51. MEK INHIBITOR (DIHYDROXYPROP-DIFLU-METHOXYPHEN-CYCLOPROPA-SULFAMI) [Suspect]
     Dosage: 30 MG, QD
     Route: 048
     Dates: start: 20110314, end: 20110314
  52. MEK INHIBITOR (DIHYDROXYPROP-DIFLU-METHOXYPHEN-CYCLOPROPA-SULFAMI) [Suspect]
     Dosage: 30 MG, BID
     Route: 048
     Dates: start: 20110315, end: 20110320
  53. MEK INHIBITOR (DIHYDROXYPROP-DIFLU-METHOXYPHEN-CYCLOPROPA-SULFAMI) [Suspect]
     Dosage: 30 MG, QD
     Route: 048
     Dates: start: 20110428, end: 20110428
  54. SORAFENIB (RAF KINASE INHIBITOR) [Suspect]
     Dosage: 400 MG, QD
     Route: 048
     Dates: start: 20110321, end: 20110414
  55. SORAFENIB (RAF KINASE INHIBITOR) [Suspect]
     Dosage: 400 MG, QOD
     Route: 048
     Dates: start: 20110615, end: 20110706
  56. ADALAT [Concomitant]
     Indication: HYPERTENSION
     Dosage: 60 MG, QD
     Route: 048
     Dates: start: 20100605, end: 20110428
  57. NEURONTIN [Concomitant]
     Indication: PAIN
     Dosage: 300 MG, TID
     Route: 048
     Dates: start: 20110217, end: 20110428
  58. CELEBREX [Concomitant]
     Indication: PERIPHERAL SENSORY NEUROPATHY
     Dosage: 200 MG, BID
     Route: 048
     Dates: start: 20101229, end: 20110226
  59. PHENIRAMINE [Concomitant]
     Dosage: 4 MG, QD
     Route: 042
     Dates: start: 20110429, end: 20110430
  60. K40NS500 INJ [Concomitant]
     Indication: MEDICAL DIET
     Dosage: 500 ML, QD
     Route: 042
     Dates: start: 20110216, end: 20110217
  61. TC-99M-RBC [Concomitant]
     Dosage: 1 BOTTLE QD
     Route: 042
     Dates: start: 20110323, end: 20110323
  62. TC-99M-RBC [Concomitant]
     Dosage: 1 BOTTLE QD
     Route: 042
     Dates: start: 20110801, end: 20110801
  63. LIVACT [AMINO ACIDS NOS] [Concomitant]
     Dosage: 4.15 MG, TID
     Route: 042
     Dates: start: 20101115, end: 20110131
  64. SIMETHICONE [Concomitant]
     Dosage: 20 ML, QD
     Route: 048
     Dates: start: 20110429, end: 20110429
  65. HEPASOL [Concomitant]
     Dosage: 25 MG, QD
     Route: 042
     Dates: start: 20110210, end: 20110210
  66. MEK INHIBITOR (DIHYDROXYPROP-DIFLU-METHOXYPHEN-CYCLOPROPA-SULFAMI) [Suspect]
     Dosage: 30 MG, BID
     Route: 048
     Dates: start: 20110510, end: 20110525
  67. SORAFENIB (RAF KINASE INHIBITOR) [Suspect]
     Dosage: 400 MG, QD
     Route: 048
     Dates: start: 20110212, end: 20110212
  68. ADELAVIN [Concomitant]
     Dosage: 2 ML, QD
     Route: 042
     Dates: start: 20110430, end: 20110504
  69. CLINIMIX N9G15E [Concomitant]
     Dosage: 1500 ML, QD
     Route: 042
     Dates: start: 20110429, end: 20110430
  70. LANSTON [Concomitant]
     Indication: UPPER GASTROINTESTINAL HAEMORRHAGE
     Dosage: 15 ML, QD
     Route: 048
     Dates: start: 20110217, end: 20110428
  71. M.V.I. [Concomitant]
     Dosage: 5 ML, QD
     Route: 042
     Dates: start: 20110502, end: 20110503
  72. MEK INHIBITOR (DIHYDROXYPROP-DIFLU-METHOXYPHEN-CYCLOPROPA-SULFAMI) [Suspect]
     Dosage: 30 MG, QD
     Route: 048
     Dates: start: 20110307, end: 20110307
  73. MEK INHIBITOR (DIHYDROXYPROP-DIFLU-METHOXYPHEN-CYCLOPROPA-SULFAMI) [Suspect]
     Dosage: 30 MG, QD
     Route: 048
     Dates: start: 20110509, end: 20110509
  74. SORAFENIB (RAF KINASE INHIBITOR) [Suspect]
     Dosage: 600 MG, QD
     Route: 048
     Dates: start: 20110208, end: 20110211
  75. SORAFENIB (RAF KINASE INHIBITOR) [Suspect]
     Dosage: 400 MG, QD
     Dates: start: 20110221, end: 20110227
  76. SORAFENIB (RAF KINASE INHIBITOR) [Suspect]
     Dosage: 400 MG, QOD
     Route: 048
     Dates: start: 20110510, end: 20110525
  77. ADELAVIN [Concomitant]
     Indication: SUPPLEMENTATION THERAPY
     Dosage: 2 ML, QD
     Route: 042
     Dates: start: 20110214, end: 20110216
  78. PHENIRAMINE [Concomitant]
     Dosage: 4 MG, QD
     Route: 042
     Dates: start: 20110216, end: 20110216
  79. PHENIRAMINE [Concomitant]
     Dosage: 1440 ML, UNK
     Dates: start: 20110216, end: 20110217
  80. PHENIRAMINE [Concomitant]
     Dosage: 4 MG, UNK
     Route: 042
     Dates: start: 20110725, end: 20110725
  81. CLINIMIX N9G15E [Concomitant]
     Dosage: 1500 ML, QD
     Route: 042
     Dates: start: 20110725, end: 20110803
  82. LANSTON [Concomitant]
     Indication: GASTROOESOPHAGEAL REFLUX DISEASE
     Dosage: 30 MG, QD
     Dates: start: 20100614, end: 20110213
  83. L-CARNITINE [Concomitant]
     Indication: HEPATITIS
     Dosage: 1 DF, TID
     Route: 048
     Dates: start: 20110217, end: 20110428
  84. HYDROMORPHONE HCL [Concomitant]
     Indication: PERIPHERAL SENSORY NEUROPATHY
     Dosage: 4 MG, TID
     Route: 048
     Dates: start: 20110706, end: 20110823

REACTIONS (5)
  - UPPER GASTROINTESTINAL HAEMORRHAGE [None]
  - HAEMOGLOBIN DECREASED [None]
  - CEREBRAL HAEMORRHAGE [None]
  - LABORATORY TEST ABNORMAL [None]
  - DUODENAL ULCER [None]
